FAERS Safety Report 7371244-4 (Version None)
Quarter: 2011Q1

REPORT INFORMATION
  Report Type: 
  Country: None (occurrence: None)
  Receive Date: 20110324
  Receipt Date: 20110311
  Transmission Date: 20110831
  Serious: Yes (Hospitalization)
  Sender: FDA-Public Use
  Company Number: US-CELGENEUS-163-21880-10113251

PATIENT
  Sex: Male

DRUGS (14)
  1. REVLIMID [Suspect]
     Indication: MYELODYSPLASTIC SYNDROME
     Dosage: 10 MILLIGRAM
     Route: 048
     Dates: start: 20101121, end: 20101126
  2. OMEPRAZOLE [Concomitant]
     Dosage: 20 MILLIGRAM
     Route: 065
  3. ACTOS [Concomitant]
     Route: 065
  4. LISINOPRIL [Concomitant]
     Dosage: 30 MILLIGRAM
     Route: 065
  5. FISH OIL [Concomitant]
     Route: 065
  6. FUROSEMIDE [Concomitant]
     Dosage: 20 MILLIGRAM
     Route: 065
  7. LOVASTATIN [Concomitant]
     Dosage: 30 MILLIGRAM
     Route: 065
  8. GLIPIZIDE [Concomitant]
     Dosage: 10 MILLIGRAM
     Route: 065
  9. VITAMIN D [Concomitant]
     Route: 065
  10. ADVAIR DISKUS 100/50 [Concomitant]
     Dosage: 250/50
     Route: 065
  11. VITAMIN D [Concomitant]
     Dosage: 1000 IU (INTERNATIONAL UNIT)
     Route: 065
  12. SANCTURA XR [Concomitant]
     Route: 048
  13. FLOMAX [Concomitant]
     Dosage: .4 MILLIGRAM
     Route: 065
  14. NIACIN [Concomitant]
     Dosage: 500 MILLIGRAM
     Route: 065

REACTIONS (3)
  - RASH PRURITIC [None]
  - DRY SKIN [None]
  - TESTICULAR SWELLING [None]
